FAERS Safety Report 7722604-0 (Version None)
Quarter: 2011Q3

REPORT INFORMATION
  Report Type: 
  Country: None (occurrence: None)
  Receive Date: 20110831
  Receipt Date: 20110818
  Transmission Date: 20111222
  Serious: Yes (Other)
  Sender: FDA-Public Use
  Company Number: US-BAUSCH-2011BL005284

PATIENT
  Age: 75 Year
  Sex: Male

DRUGS (7)
  1. BESIVANCE [Suspect]
     Indication: POSTOPERATIVE CARE
     Route: 047
     Dates: start: 20110605, end: 20110617
  2. BESIVANCE [Suspect]
     Route: 047
     Dates: start: 20110605, end: 20110617
  3. PRED FORTE [Concomitant]
     Route: 047
  4. LATANOPROST [Concomitant]
     Route: 047
  5. BESIVANCE [Suspect]
     Indication: PREOPERATIVE CARE
     Route: 047
     Dates: start: 20110605, end: 20110617
  6. BROMDAY [Concomitant]
     Route: 047
  7. TIMOPTIC-XE [Concomitant]
     Route: 047

REACTIONS (2)
  - ENDOPHTHALMITIS [None]
  - ULCERATIVE KERATITIS [None]
